FAERS Safety Report 21633098 (Version 1)
Quarter: 2022Q4

REPORT INFORMATION
  Report Type: Spontaneous
  Country: FR (occurrence: FR)
  Receive Date: 20221123
  Receipt Date: 20221123
  Transmission Date: 20230113
  Serious: Yes (Other)
  Sender: FDA-Public Use
  Company Number: None

PATIENT
  Age: 35 Year
  Sex: Male

DRUGS (3)
  1. FENTANYL [Suspect]
     Active Substance: FENTANYL
     Indication: Product used for unknown indication
     Dosage: FENTANYL 150?G/H AND 175?G/H TRANSDERMAL DEVICE
     Route: 062
  2. FENTANYL [Suspect]
     Active Substance: FENTANYL
     Indication: Product used for unknown indication
     Dosage: NOT PROVIDED, (16.8 MG/42 CM?), TRANSDERMAL DEVICE
     Route: 062
  3. FENTANYL [Suspect]
     Active Substance: FENTANYL
     Indication: Product used for unknown indication
     Dosage: NOT PROVIDED, (8,4 MG/21 CM?), TRANSDERMAL DEVICE
     Route: 062

REACTIONS (2)
  - Drug abuse [Not Recovered/Not Resolved]
  - Pharmaceutical nomadism [Not Recovered/Not Resolved]
